FAERS Safety Report 10225416 (Version 1)
Quarter: 2014Q1

REPORT INFORMATION
  Report Type: Spontaneous
  Country: US (occurrence: None)
  Receive Date: 20140306
  Receipt Date: 20140306
  Transmission Date: 20141002
  Serious: Yes (Other)
  Sender: FDA-Public Use
  Company Number: 163-21880-13090772

PATIENT
  Age: 78 Year
  Sex: Female

DRUGS (8)
  1. REVLIMID [Suspect]
     Indication: PLASMA CELL MYELOMA
     Dosage: 10 MG, 14 IN 21 D, PO
     Route: 048
     Dates: start: 201305
  2. VELCADE (BORTEZOMIB) [Concomitant]
  3. MUCINEX D [Concomitant]
  4. STOOL SOFTENER (DOCUSATE SODIUM) [Concomitant]
  5. OMEPRAZOLE (OMEPRAZOLE) [Concomitant]
  6. ASA (ACETYLSALICYLIC ACID) [Concomitant]
  7. AZILECT (RASAGILINE MESYLATE) [Concomitant]
  8. SINEMET (SINEMET) [Concomitant]

REACTIONS (6)
  - Alopecia [None]
  - Lacrimation increased [None]
  - Exophthalmos [None]
  - Hypoaesthesia [None]
  - Plasma cell myeloma [None]
  - Pruritus [None]
